FAERS Safety Report 18064097 (Version 1)
Quarter: 2020Q3

REPORT INFORMATION
  Report Type: Spontaneous
  Country: US (occurrence: US)
  Receive Date: 20200724
  Receipt Date: 20200724
  Transmission Date: 20201103
  Serious: No
  Sender: FDA-Public Use
  Company Number: US-HTU-2020US020811

PATIENT
  Age: 71 Year
  Sex: Male

DRUGS (2)
  1. CLOBETASOL [Concomitant]
     Active Substance: CLOBETASOL
  2. VALCHLOR [Suspect]
     Active Substance: MECHLORETHAMINE
     Indication: CUTANEOUS T-CELL LYMPHOMA
     Dosage: THIN FILM, SINGLE
     Route: 061

REACTIONS (6)
  - Erythema [Unknown]
  - Application site discharge [Unknown]
  - Application site pain [Unknown]
  - Application site erosion [Unknown]
  - Pruritus [Unknown]
  - Application site rash [Unknown]

NARRATIVE: CASE EVENT DATE: 202006
